FAERS Safety Report 24343194 (Version 1)
Quarter: 2024Q3

REPORT INFORMATION
  Report Type: Spontaneous
  Country: US (occurrence: US)
  Receive Date: 20240920
  Receipt Date: 20240920
  Transmission Date: 20241017
  Serious: No
  Sender: Haleon PLC
  Company Number: US-HALEON-2196960

PATIENT

DRUGS (1)
  1. NEXIUM 24HR CLEARMINIS [Suspect]
     Active Substance: ESOMEPRAZOLE MAGNESIUM
     Indication: Product used for unknown indication
     Dosage: EXPDATE:20251231 1 - CAPSULES (CPS)

REACTIONS (3)
  - Dyspepsia [Unknown]
  - Condition aggravated [Unknown]
  - Drug effect less than expected [Unknown]
